FAERS Safety Report 20268770 (Version 1)
Quarter: 2022Q1

REPORT INFORMATION
  Report Type: Spontaneous
  Country: US (occurrence: US)
  Receive Date: 20220101
  Receipt Date: 20220101
  Transmission Date: 20220423
  Serious: Yes (Other)
  Sender: FDA-Public Use
  Company Number: US-COOPERSURGICAL, INC.-US-2021CPS001184

PATIENT
  Sex: Female

DRUGS (1)
  1. PARAGARD T 380A [Suspect]
     Active Substance: COPPER
     Indication: Product used for unknown indication
     Dosage: UNK
     Route: 015

REACTIONS (5)
  - Pregnancy with contraceptive device [Unknown]
  - Off label use [Recovered/Resolved]
  - Vaginal discharge [Unknown]
  - Muscle spasms [Unknown]
  - Drug ineffective [Unknown]
